FAERS Safety Report 15210472 (Version 4)
Quarter: 2019Q1

REPORT INFORMATION
  Report Type: Report from Study
  Country: US (occurrence: US)
  Receive Date: 20180727
  Receipt Date: 20190130
  Transmission Date: 20190417
  Serious: Yes (Disabling)
  Sender: FDA-Public Use
  Company Number: US-BAUSCH-BL-2018-020346

PATIENT
  Age: 17 Year
  Sex: Female
  Weight: 70.37 kg

DRUGS (7)
  1. SYPRINE [Suspect]
     Active Substance: TRIENTINE HYDROCHLORIDE
     Dosage: DOSE DECREASED
     Route: 048
     Dates: start: 20150213, end: 2015
  2. SYPRINE [Suspect]
     Active Substance: TRIENTINE HYDROCHLORIDE
     Route: 048
     Dates: start: 201504
  3. SYPRINE [Suspect]
     Active Substance: TRIENTINE HYDROCHLORIDE
     Indication: HEPATO-LENTICULAR DEGENERATION
     Route: 048
     Dates: start: 20150202, end: 201502
  4. IBUPROFEN. [Concomitant]
     Active Substance: IBUPROFEN
     Indication: PRODUCT USED FOR UNKNOWN INDICATION
     Dosage: AS NEEDED
     Route: 065
  5. SKYLA [Concomitant]
     Active Substance: LEVONORGESTREL
     Indication: PRODUCT USED FOR UNKNOWN INDICATION
     Route: 015
  6. VITAMIN B6 [Concomitant]
     Active Substance: PYRIDOXINE HYDROCHLORIDE
     Indication: PRODUCT USED FOR UNKNOWN INDICATION
     Route: 048
  7. SYPRINE [Suspect]
     Active Substance: TRIENTINE HYDROCHLORIDE
     Dosage: DOSE REDUCED
     Route: 048
     Dates: start: 20150323, end: 2015

REACTIONS (13)
  - Aphasia [Recovering/Resolving]
  - Intentional product use issue [Recovered/Resolved]
  - Headache [Unknown]
  - Gastric disorder [Unknown]
  - Fatigue [Unknown]
  - Dysgraphia [Unknown]
  - Stress [Unknown]
  - Ill-defined disorder [Unknown]
  - Product dose omission [Recovered/Resolved]
  - Tremor [Recovered/Resolved]
  - Nausea [Recovered/Resolved]
  - Extra dose administered [Unknown]
  - Dysarthria [Recovering/Resolving]

NARRATIVE: CASE EVENT DATE: 2015
